FAERS Safety Report 8438498 (Version 2)
Quarter: 2012Q4

REPORT INFORMATION
  Report Type: 
  Country: US (occurrence: None)
  Receive Date: 20120104
  Receipt Date: 20120508
  Transmission Date: 20130627
  Serious: Yes (Hospitalization)
  Sender: FDA-Public Use
  Company Number: 2011HGS-002883

PATIENT
  Age: 42 Year
  Sex: Female
  Weight: 119.75 kg

DRUGS (14)
  1. BENLYSTA [Suspect]
     Indication: SYSTEMIC LUPUS ERYTHEMATOSUS
     Dosage: 1 IN 14 D, INTRAVENOUS DRIP
     Route: 041
     Dates: start: 20111109, end: 20111109
  2. BENLYSTA [Suspect]
     Indication: SYSTEMIC LUPUS ERYTHEMATOSUS
     Dosage: 1 in 14 d, intravenous drip
     Route: 041
     Dates: start: 20111109, end: 20111109
  3. AMBIEN (ZOLPIDEM TARTRATE) (ZOLPIDEM TARTRATE) [Concomitant]
  4. CELLCEPT (MYCOPHENOLATE MOFETIL) (MYCOPHENOLATE MOFETIL) [Concomitant]
  5. FENTANYL (FENTANYL) (FENTANYL) [Concomitant]
  6. LYRICA (PREGABALIN) (PREGABALIN) [Concomitant]
  7. MELOXICAM (MELOXICAM) (MELOXICAM) [Concomitant]
  8. MORPHINE (MORPHINE) (MORPHINE) [Concomitant]
  9. PERCOCET (TYLOX 00446701/) (PARACETAMOL, OXYCODONE HYDROCHLORIDE, OXYCODONE TEREPHTHALATE) [Concomitant]
  10. PREDNISONE (PREDNISONE) (PREDNISONE) [Concomitant]
  11. PREMARIN (ESTROGENS CONJUGATED) (ESTROGENS CONJUGATED) [Concomitant]
  12. TOPAMAX (TOPIRAMATE) (TOPIRAMATE) [Concomitant]
  13. ZOFRAN (ONDANSETRON) (ONDANSETRON) [Concomitant]
  14. LEVOTHYROXINE (LEVOTHYROXINE) (LEVOTHROXINE) [Concomitant]

REACTIONS (3)
  - Meningitis viral [None]
  - Back pain [None]
  - Pyrexia [None]
